FAERS Safety Report 18440032 (Version 2)
Quarter: 2020Q4

REPORT INFORMATION
  Report Type: Spontaneous
  Country: BE (occurrence: BE)
  Receive Date: 20201029
  Receipt Date: 20201208
  Transmission Date: 20210114
  Serious: Yes (Death, Other)
  Sender: FDA-Public Use
  Company Number: BE-TAKEDA-2020TUS045707

PATIENT
  Sex: Female
  Weight: 52 kg

DRUGS (1)
  1. BRIGATINIB [Suspect]
     Active Substance: BRIGATINIB
     Indication: NON-SMALL CELL LUNG CANCER
     Dosage: UNK
     Route: 065
     Dates: start: 20200916

REACTIONS (4)
  - Non-small cell lung cancer [Unknown]
  - Hypertension [Unknown]
  - Death [Fatal]
  - Blood creatine phosphokinase increased [Unknown]
